FAERS Safety Report 13933412 (Version 2)
Quarter: 2017Q3

REPORT INFORMATION
  Report Type: Spontaneous
  Country: DE (occurrence: DE)
  Receive Date: 20170904
  Receipt Date: 20170905
  Transmission Date: 20171127
  Serious: Yes (Other)
  Sender: FDA-Public Use
  Company Number: PHHY2017DE056488

PATIENT
  Sex: Male

DRUGS (5)
  1. CICLOSPORIN [Suspect]
     Active Substance: CYCLOSPORINE
     Indication: PRODUCT USED FOR UNKNOWN INDICATION
     Route: 065
  2. COSENTYX [Suspect]
     Active Substance: SECUKINUMAB
     Indication: PSORIASIS
     Dosage: 150 MG, UNK
     Route: 058
     Dates: start: 20160126
  3. CLOPIDOGREL [Concomitant]
     Active Substance: CLOPIDOGREL BISULFATE
     Indication: STENT PLACEMENT
     Dosage: UNK
     Route: 065
     Dates: start: 201609, end: 20170407
  4. ELIQUIS [Concomitant]
     Active Substance: APIXABAN
     Indication: STENT PLACEMENT
     Dosage: UNK
     Route: 065
     Dates: start: 201609
  5. COSENTYX [Suspect]
     Active Substance: SECUKINUMAB
     Dosage: 150 MG, UNK
     Route: 058
     Dates: start: 20170305

REACTIONS (7)
  - Respiratory disorder [Unknown]
  - Blood count abnormal [Unknown]
  - Aplastic anaemia [Unknown]
  - Dyspnoea [Not Recovered/Not Resolved]
  - Sinusitis [Unknown]
  - Pulmonary function test abnormal [Unknown]
  - Monocytosis [Unknown]

NARRATIVE: CASE EVENT DATE: 201701
